FAERS Safety Report 17208569 (Version 2)
Quarter: 2020Q1

REPORT INFORMATION
  Report Type: Spontaneous
  Country: US (occurrence: US)
  Receive Date: 20191227
  Receipt Date: 20200109
  Transmission Date: 20200409
  Serious: No
  Sender: FDA-Public Use
  Company Number: US-PFIZER INC-2019558435

PATIENT
  Age: 82 Year
  Sex: Female

DRUGS (3)
  1. ZINC CHLORIDE [Suspect]
     Active Substance: ZINC CHLORIDE
     Dosage: UNK
  2. BACITRACIN. [Suspect]
     Active Substance: BACITRACIN
     Dosage: UNK
  3. BACITRACIN ZINC. [Suspect]
     Active Substance: BACITRACIN ZINC
     Dosage: UNK

REACTIONS (1)
  - Drug hypersensitivity [Unknown]
